FAERS Safety Report 7466467-X (Version None)
Quarter: 2011Q2

REPORT INFORMATION
  Report Type: 
  Country: None (occurrence: None)
  Receive Date: 20110509
  Receipt Date: 20100817
  Transmission Date: 20111010
  Serious: No
  Sender: FDA-Public Use
  Company Number: US-ALEXION-A201001008

PATIENT

DRUGS (14)
  1. EFFEXOR XR [Concomitant]
     Dosage: 37.5 MG, QD
     Route: 048
  2. PLAQUENIL [Concomitant]
     Indication: RHEUMATOID ARTHRITIS
     Dosage: 200 MG, BID
     Route: 048
  3. PLAQUENIL [Concomitant]
     Indication: SYSTEMIC LUPUS ERYTHEMATOSUS
  4. VITAMIN A [Concomitant]
     Indication: OSTEOPOROSIS
     Dosage: 10000 UT, QD
     Route: 048
  5. CALTRATE + D                       /00944201/ [Concomitant]
     Indication: OSTEOPOROSIS
     Dosage: UNK
     Route: 048
  6. SOLIRIS [Suspect]
     Indication: PAROXYSMAL NOCTURNAL HAEMOGLOBINURIA
     Dosage: 600 MG, QWX4
     Route: 042
     Dates: start: 20100128, end: 20100201
  7. ZIAC                               /01166101/ [Concomitant]
     Indication: HYPERTENSION
     Dosage: 5-6.25 MG
     Route: 048
  8. TRAZODONE [Concomitant]
     Indication: SLEEP DISORDER
     Dosage: 200 MG, QHS
     Route: 048
  9. FOLIC ACID [Concomitant]
     Indication: PAROXYSMAL NOCTURNAL HAEMOGLOBINURIA
     Dosage: 1 MG, QD
     Route: 048
  10. KLOR-CON [Concomitant]
     Indication: BLOOD POTASSIUM DECREASED
     Dosage: 20 MEQ, BID
     Route: 048
  11. PREDNISONE [Concomitant]
     Indication: RHEUMATOID ARTHRITIS
     Dosage: 5 MG, BID
     Route: 048
  12. EFFEXOR XR [Concomitant]
     Indication: MENTAL DISORDER
     Dosage: 75 MG, QD
     Route: 048
  13. CLONAZEPAM [Concomitant]
     Indication: SLEEP DISORDER
     Dosage: 0.5 MG, QHS
     Route: 048
  14. SOLIRIS [Suspect]
     Dosage: 900 MG, Q2W
     Dates: start: 20100226

REACTIONS (3)
  - LACERATION [None]
  - NEUROPATHY PERIPHERAL [None]
  - FALL [None]
